FAERS Safety Report 5477759-8 (Version None)
Quarter: 2007Q3

REPORT INFORMATION
  Report Type: 
  Country: None (occurrence: None)
  Receive Date: 20070831
  Receipt Date: 20070531
  Transmission Date: 20080115
  Serious: No
  Sender: FDA-Public Use
  Company Number: PHEH2006US11673

PATIENT
  Age: 19 Year
  Sex: Female

DRUGS (6)
  1. EXJADE [Suspect]
     Indication: HAEMOCHROMATOSIS
     Dosage: 500 MG, ONCE/SINGLE, ORAL; 1000 MG, ONCE/SINGLE, ORAL; 1500 MG, QD, ORAL
     Route: 048
     Dates: start: 20060909, end: 20060909
  2. EXJADE [Suspect]
     Indication: HAEMOCHROMATOSIS
     Dosage: 500 MG, ONCE/SINGLE, ORAL; 1000 MG, ONCE/SINGLE, ORAL; 1500 MG, QD, ORAL
     Route: 048
     Dates: start: 20060910, end: 20060910
  3. EXJADE [Suspect]
     Indication: HAEMOCHROMATOSIS
     Dosage: 500 MG, ONCE/SINGLE, ORAL; 1000 MG, ONCE/SINGLE, ORAL; 1500 MG, QD, ORAL
     Route: 048
     Dates: start: 20060910, end: 20070313
  4. MULTIVIT (VITAMINS NOS) [Concomitant]
  5. MIRALAX [Concomitant]
  6. ACIDOPHILUS (LACTOBACILLUS ACIDOPHILUS) [Concomitant]

REACTIONS (3)
  - HERPES ZOSTER [None]
  - RASH ERYTHEMATOUS [None]
  - URTICARIA [None]
